FAERS Safety Report 14093451 (Version 5)
Quarter: 2018Q2

REPORT INFORMATION
  Report Type: Spontaneous
  Country: GB (occurrence: GB)
  Receive Date: 20171016
  Receipt Date: 20180404
  Transmission Date: 20180711
  Serious: Yes (Hospitalization, Other)
  Sender: FDA-Public Use
  Company Number: GB-PFIZER INC-2017435228

PATIENT
  Age: 9 Year
  Sex: Female

DRUGS (4)
  1. GENOTROPIN [Suspect]
     Active Substance: SOMATROPIN
     Dosage: UNK (0.4)
  2. NOVORAPID [Concomitant]
     Active Substance: INSULIN ASPART
     Dosage: UNK
  3. GENOTROPIN [Suspect]
     Active Substance: SOMATROPIN
     Dosage: UNK (1.0 FOR 5 DAYS, THEN 1.2 FOR 2 DAYS)
  4. LEVOTHYROXINE. [Concomitant]
     Active Substance: LEVOTHYROXINE
     Dosage: UNK

REACTIONS (7)
  - Diabetic ketoacidosis [Recovered/Resolved]
  - Thyroid disorder [Unknown]
  - Blood glucose increased [Unknown]
  - Type 1 diabetes mellitus [Not Recovered/Not Resolved]
  - Hypoglycaemia [Unknown]
  - Intentional product use issue [Unknown]
  - Disease recurrence [Unknown]

NARRATIVE: CASE EVENT DATE: 20160807
